FAERS Safety Report 24118968 (Version 1)
Quarter: 2024Q3

REPORT INFORMATION
  Report Type: Spontaneous
  Country: ES (occurrence: ES)
  Receive Date: 20240722
  Receipt Date: 20240722
  Transmission Date: 20241016
  Serious: Yes (Life-Threatening, Hospitalization, Other)
  Sender: AUROBINDO
  Company Number: ES-AEMPS-1550302

PATIENT
  Age: 59 Year
  Sex: Female

DRUGS (4)
  1. FENTANYL [Interacting]
     Active Substance: FENTANYL\FENTANYL CITRATE
     Indication: Product used for unknown indication
     Dosage: 200 MILLIGRAM, 1 TOTAL
     Route: 062
     Dates: start: 20240416, end: 20240416
  2. GABAPENTIN [Interacting]
     Active Substance: GABAPENTIN
     Indication: Radicular pain
     Dosage: 200 MILLIGRAM, ONCE A DAY
     Route: 048
     Dates: start: 202207, end: 20240416
  3. TRAMADOL [Interacting]
     Active Substance: TRAMADOL\TRAMADOL HYDROCHLORIDE
     Indication: Product used for unknown indication
     Dosage: 200 MILLIGRAM, 1 TOTAL
     Route: 048
     Dates: start: 20240416, end: 20240416
  4. RIVOTRIL [Interacting]
     Active Substance: CLONAZEPAM
     Indication: Radicular pain
     Dosage: 2 MILLIGRAM, ONCE A DAY
     Route: 048
     Dates: start: 201201, end: 20240416

REACTIONS (1)
  - Depressed level of consciousness [Recovered/Resolved]

NARRATIVE: CASE EVENT DATE: 20240416
